FAERS Safety Report 5571474-8 (Version None)
Quarter: 2007Q4

REPORT INFORMATION
  Report Type: 
  Country: None (occurrence: None)
  Receive Date: 20071221
  Receipt Date: 20071217
  Transmission Date: 20080405
  Serious: Yes (Other)
  Sender: FDA-Public Use
  Company Number: DE-JNJFOC-20071204581

PATIENT
  Age: 82 Year
  Sex: Male

DRUGS (1)
  1. REMINYL [Suspect]
     Indication: DEMENTIA
     Route: 048

REACTIONS (3)
  - CHILLS [None]
  - MUSCULOSKELETAL STIFFNESS [None]
  - WITHDRAWAL SYNDROME [None]
